FAERS Safety Report 14017982 (Version 1)
Quarter: 2017Q3

REPORT INFORMATION
  Report Type: Report from Study
  Country: US (occurrence: US)
  Receive Date: 20170928
  Receipt Date: 20170928
  Transmission Date: 20171128
  Serious: Yes (Other)
  Sender: FDA-Public Use
  Company Number: US-ROCHE-1944640

PATIENT

DRUGS (5)
  1. BASILIXIMAB [Suspect]
     Active Substance: BASILIXIMAB
     Indication: PROPHYLAXIS AGAINST TRANSPLANT REJECTION
     Dosage: POST-OPERATIVE DAY 0 AND 4
     Route: 042
  2. MYCOPHENOLATE MOFETIL. [Suspect]
     Active Substance: MYCOPHENOLATE MOFETIL
     Indication: PROPHYLAXIS AGAINST TRANSPLANT REJECTION
     Route: 065
  3. PREDNISOLONE. [Suspect]
     Active Substance: PREDNISOLONE
     Indication: PROPHYLAXIS AGAINST TRANSPLANT REJECTION
     Dosage: DECREASING TO 0.25 MG/D ON POST-OPERATIVE DAY 30 AND 0.15 MG/KG AT 1 YEAR
     Route: 048
  4. OKT3 [Suspect]
     Active Substance: MUROMONAB-CD3
     Indication: PROPHYLAXIS AGAINST TRANSPLANT REJECTION
     Dosage: FOR 3-5 D (UP TO 10 D IN CASES OF DELAYED GRAFT FUNCTION)
     Route: 042
  5. CYCLOSPORINE. [Suspect]
     Active Substance: CYCLOSPORINE
     Indication: PROPHYLAXIS AGAINST TRANSPLANT REJECTION
     Dosage: 5-7 MG/KG/D
     Route: 065

REACTIONS (10)
  - Herpes simplex [Unknown]
  - Fungal infection [Unknown]
  - Thrombocytopenia [Unknown]
  - Intestinal haemorrhage [Unknown]
  - Cytomegalovirus infection [Unknown]
  - Abdominal pain [Unknown]
  - Urinary tract infection [Unknown]
  - Infection [Unknown]
  - Diarrhoea [Unknown]
  - Neutropenia [Unknown]
